FAERS Safety Report 8362371-3 (Version None)
Quarter: 2012Q2

REPORT INFORMATION
  Report Type: 
  Country: None (occurrence: None)
  Receive Date: 20120516
  Receipt Date: 20120508
  Transmission Date: 20120825
  Serious: Yes (Hospitalization)
  Sender: FDA-Public Use
  Company Number: US-BIOGENIDEC-2012BI014115

PATIENT
  Age: 49 Year
  Sex: Female

DRUGS (2)
  1. AVONEX [Suspect]
     Indication: MULTIPLE SCLEROSIS
     Route: 030
     Dates: start: 20120307, end: 20120401
  2. AVONEX [Suspect]
     Route: 030
     Dates: start: 20120401

REACTIONS (2)
  - PNEUMONIA [None]
  - NASOPHARYNGITIS [None]
